FAERS Safety Report 9676020 (Version 1)
Quarter: 2013Q4

REPORT INFORMATION
  Report Type: Spontaneous
  Country: TR (occurrence: TR)
  Receive Date: 20131107
  Receipt Date: 20131107
  Transmission Date: 20140711
  Serious: Yes (Hospitalization)
  Sender: FDA-Public Use
  Company Number: PHHY2013TR124865

PATIENT
  Age: 19 Year
  Sex: Female

DRUGS (1)
  1. CARBAMAZEPINE [Suspect]

REACTIONS (11)
  - Coma [Unknown]
  - Loss of consciousness [Unknown]
  - Respiratory depression [Unknown]
  - Overdose [Unknown]
  - Blood potassium decreased [Unknown]
  - Drug level decreased [Unknown]
  - Blood pressure systolic decreased [Unknown]
  - Haemoglobin decreased [Unknown]
  - Blood calcium decreased [Unknown]
  - Blood glucose increased [Unknown]
  - Tachycardia [Unknown]
